FAERS Safety Report 18610590 (Version 1)
Quarter: 2020Q4

REPORT INFORMATION
  Report Type: Spontaneous
  Country: FR (occurrence: FR)
  Receive Date: 20201214
  Receipt Date: 20201214
  Transmission Date: 20210114
  Serious: Yes (Other)
  Sender: FDA-Public Use
  Company Number: FR-PFIZER INC-2020484708

PATIENT
  Age: 42 Year
  Sex: Male
  Weight: 65 kg

DRUGS (13)
  1. PEMETREXED. [Suspect]
     Active Substance: PEMETREXED
     Indication: BRONCHIAL CARCINOMA
     Dosage: UNK
     Route: 041
     Dates: start: 20200403, end: 20200411
  2. CARBOPLATIN. [Suspect]
     Active Substance: CARBOPLATIN
     Indication: BRONCHIAL CARCINOMA
     Dosage: UNK
     Route: 041
     Dates: start: 20200403, end: 20200515
  3. INDACATEROL [Suspect]
     Active Substance: INDACATEROL
     Indication: CHRONIC OBSTRUCTIVE PULMONARY DISEASE
     Dosage: UNK
     Route: 055
  4. CYAMEMAZINE [Suspect]
     Active Substance: CYAMEMAZINE
     Indication: MENTAL DISORDER
     Dosage: UNK
     Route: 048
  5. OXAZEPAM. [Suspect]
     Active Substance: OXAZEPAM
     Indication: ANXIETY
     Dosage: UNK
     Route: 048
  6. FOLIC ACID. [Suspect]
     Active Substance: FOLIC ACID
     Indication: VITAMIN SUPPLEMENTATION
     Dosage: UNK
     Route: 048
  7. KEYTRUDA [Suspect]
     Active Substance: PEMBROLIZUMAB
     Indication: BRONCHIAL CARCINOMA
     Dosage: 200 MG, EVERY 3 WEEKS
     Route: 041
     Dates: start: 20200403, end: 20200424
  8. SODIUM VALPROATE [Suspect]
     Active Substance: VALPROATE SODIUM
     Indication: MENTAL DISORDER
     Dosage: UNK
     Route: 048
  9. ZOLPIDEM [Suspect]
     Active Substance: ZOLPIDEM TARTRATE
     Indication: INSOMNIA
     Dosage: 10 MG, 1X/DAY
     Route: 048
  10. PEGFILGRASTIM [Suspect]
     Active Substance: PEGFILGRASTIM
     Indication: CHEMOTHERAPY CYTOKINE PROPHYLAXIS
     Dosage: UNK
     Route: 058
     Dates: start: 20200404
  11. SALBUTAMOL [Suspect]
     Active Substance: ALBUTEROL
     Indication: CHRONIC OBSTRUCTIVE PULMONARY DISEASE
     Dosage: UNK
     Route: 055
  12. METOCLOPRAMIDE. [Suspect]
     Active Substance: METOCLOPRAMIDE
     Indication: PROPHYLAXIS OF NAUSEA AND VOMITING
     Dosage: UNK
     Route: 048
     Dates: start: 20200403
  13. AKYNZEO [Suspect]
     Active Substance: NETUPITANT\PALONOSETRON HYDROCHLORIDE
     Indication: PROPHYLAXIS OF NAUSEA AND VOMITING
     Dosage: 1 DF, 1X/DAY (300 MG/0.5 MG PER DAY)
     Route: 048
     Dates: start: 20200403

REACTIONS (1)
  - Rheumatoid nodule [Recovered/Resolved with Sequelae]

NARRATIVE: CASE EVENT DATE: 20200419
